FAERS Safety Report 12245821 (Version 2)
Quarter: 2017Q1

REPORT INFORMATION
  Report Type: Spontaneous
  Country: US (occurrence: US)
  Receive Date: 20160407
  Receipt Date: 20170203
  Transmission Date: 20170428
  Serious: Yes (Other)
  Sender: FDA-Public Use
  Company Number: US-JAZZ-2016-US-006159

PATIENT
  Age: 1 Year
  Sex: Male

DRUGS (14)
  1. ZOFRAN [Concomitant]
     Active Substance: ONDANSETRON HYDROCHLORIDE
     Indication: PROPHYLAXIS OF NAUSEA AND VOMITING
     Dosage: 1.5 MG, PRN
     Route: 042
     Dates: start: 20150128, end: 20150128
  2. VINCRISTINE [Concomitant]
     Active Substance: VINCRISTINE
     Dosage: 0.8 MG, SINGLE
     Route: 042
     Dates: start: 20150126, end: 20150126
  3. DEXAMETHASONE. [Concomitant]
     Active Substance: DEXAMETHASONE
     Indication: LEUKAEMIA
     Dosage: 2.625 MG, BID
     Route: 048
     Dates: start: 20150126, end: 20150202
  4. MERCAPTOPURINE. [Concomitant]
     Active Substance: MERCAPTOPURINE
     Indication: LEUKAEMIA
     Dosage: 13 MG, QD
     Route: 048
     Dates: start: 20150102, end: 20150109
  5. METHOTREXATE. [Concomitant]
     Active Substance: METHOTREXATE
     Indication: LEUKAEMIA
     Dosage: 2374 MG, SINGLE
     Route: 042
     Dates: start: 20150102, end: 20150102
  6. DOXORUBICIN [Concomitant]
     Active Substance: DOXORUBICIN
     Indication: LEUKAEMIA
     Dosage: UNK, SINGLE
     Route: 042
     Dates: start: 20150126, end: 20150126
  7. DEXRAZOXANE. [Concomitant]
     Active Substance: DEXRAZOXANE
     Indication: LEUKAEMIA
     Dosage: 135 MG, SINGLE
     Route: 042
     Dates: start: 20150126, end: 20150126
  8. VINCRISTINE [Concomitant]
     Active Substance: VINCRISTINE
     Indication: LEUKAEMIA
     Dosage: 0.8 MG, SINGLE
     Route: 042
     Dates: start: 20150102, end: 20150102
  9. HYDROCORTISONE. [Concomitant]
     Active Substance: HYDROCORTISONE
     Indication: LEUKAEMIA
     Dosage: UNK, SINGLE
     Route: 037
     Dates: start: 20150126, end: 20150126
  10. ERWINAZE [Suspect]
     Active Substance: ASPARAGINASE ERWINIA CHRYSANTHEMI
     Indication: PRODUCT USED FOR UNKNOWN INDICATION
     Dosage: UNK
     Route: 030
  11. CYTARABINE. [Concomitant]
     Active Substance: CYTARABINE
     Indication: LEUKAEMIA
     Dosage: UNK, SINGLE
     Route: 037
     Dates: start: 20150126, end: 20150126
  12. ERWINAZE [Suspect]
     Active Substance: ASPARAGINASE ERWINIA CHRYSANTHEMI
     Dosage: 13000 IU, SINGLE (50 ML/HR OVER 1 HOURS)
     Route: 042
     Dates: start: 20150128, end: 20150128
  13. METHOTREXATE. [Concomitant]
     Active Substance: METHOTREXATE
     Dosage: UNK UNK, SINGLE
     Route: 037
     Dates: start: 20150126, end: 20150126
  14. RANITIDINE. [Concomitant]
     Active Substance: RANITIDINE
     Indication: PROPHYLAXIS AGAINST GASTROINTESTINAL ULCER
     Dosage: 24 MG, BID
     Route: 048
     Dates: start: 20150126, end: 20150202

REACTIONS (1)
  - Anaphylactic reaction [Recovered/Resolved]

NARRATIVE: CASE EVENT DATE: 20150128
